FAERS Safety Report 4902045-1 (Version None)
Quarter: 2006Q1

REPORT INFORMATION
  Report Type: 
  Country: None (occurrence: None)
  Receive Date: 20060202
  Receipt Date: 20060123
  Transmission Date: 20060701
  Serious: Yes (Life-Threatening, Hospitalization)
  Sender: FDA-Public Use
  Company Number: CERZ-11120

PATIENT
  Age: 39 Year
  Sex: Male
  Weight: 84.1 kg

DRUGS (1)
  1. CEREZYME [Suspect]
     Indication: GAUCHER'S DISEASE
     Dosage: 5200 UNITS Q2WKS IV
     Route: 042

REACTIONS (1)
  - APPENDICITIS PERFORATED [None]
